FAERS Safety Report 5502759-9 (Version None)
Quarter: 2007Q4

REPORT INFORMATION
  Report Type: 
  Country: None (occurrence: None)
  Receive Date: 20071031
  Receipt Date: 20071019
  Transmission Date: 20080405
  Serious: Yes (Death, Hospitalization, Other)
  Sender: FDA-Public Use
  Company Number: HQWYE588625AUG04

PATIENT
  Sex: Female
  Weight: 79.45 kg

DRUGS (5)
  1. PREMARIN [Suspect]
     Dosage: UNSPECIFIED
     Route: 048
     Dates: start: 19920101, end: 20040101
  2. ESTROGENS ESTERIFIED/METHYLTESTOSTERONE [Suspect]
  3. XANAX [Concomitant]
  4. ESTRACE [Suspect]
  5. ESTRADIOL [Suspect]
     Indication: MENOPAUSAL SYMPTOMS PROPHYLAXIS
     Dosage: UNKNOWN
     Route: 048
     Dates: start: 19890101

REACTIONS (1)
  - OVARIAN CANCER METASTATIC [None]
